FAERS Safety Report 4800257-9 (Version None)
Quarter: 2005Q4

REPORT INFORMATION
  Report Type: 
  Country: None (occurrence: None)
  Receive Date: 20051017
  Receipt Date: 20050804
  Transmission Date: 20060501
  Serious: No
  Sender: FDA-Public Use
  Company Number: US-GLAXOSMITHKLINE-A0568966A

PATIENT
  Age: 22 Year
  Sex: Male

DRUGS (2)
  1. CEFTIN [Suspect]
     Indication: TONSILLECTOMY
     Dosage: 1TSP TWICE PER DAY
     Route: 048
     Dates: start: 20050603
  2. HYDROCODONE [Concomitant]

REACTIONS (3)
  - DYSGEUSIA [None]
  - PHARMACEUTICAL PRODUCT COMPLAINT [None]
  - VOMITING [None]
